FAERS Safety Report 25975068 (Version 1)
Quarter: 2025Q4

REPORT INFORMATION
  Report Type: Report from Study
  Country: IL (occurrence: IL)
  Receive Date: 20251029
  Receipt Date: 20251029
  Transmission Date: 20260118
  Serious: Yes (Hospitalization)
  Sender: TAKEDA
  Company Number: IL-KAMADA LIMITED-2025-KAM-IL000643

PATIENT
  Age: 70 Year
  Sex: Female

DRUGS (2)
  1. GLASSIA [Suspect]
     Active Substance: .ALPHA.1-PROTEINASE INHIBITOR HUMAN
     Indication: Graft versus host disease
     Dosage: 90 MILLIGRAM/KILOGRAM
  2. GLASSIA [Suspect]
     Active Substance: .ALPHA.1-PROTEINASE INHIBITOR HUMAN
     Dosage: 30 MILLIGRAM/KILOGRAM

REACTIONS (1)
  - Drug ineffective for unapproved indication [Unknown]
